FAERS Safety Report 6976881-4 (Version None)
Quarter: 2010Q3

REPORT INFORMATION
  Report Type: 
  Country: None (occurrence: None)
  Receive Date: 20100910
  Receipt Date: 20100902
  Transmission Date: 20110219
  Serious: Yes (Other)
  Sender: FDA-Public Use
  Company Number: B0673081A

PATIENT
  Sex: Male

DRUGS (1)
  1. ALLERMIST [Suspect]
     Indication: PRODUCT USED FOR UNKNOWN INDICATION
     Dosage: 110MCG PER DAY
     Route: 045
     Dates: start: 20100830, end: 20100831

REACTIONS (1)
  - LARYNGEAL HAEMORRHAGE [None]
